FAERS Safety Report 5237039-2 (Version None)
Quarter: 2007Q1

REPORT INFORMATION
  Report Type: 
  Country: None (occurrence: None)
  Receive Date: 20070209
  Receipt Date: 20070131
  Transmission Date: 20070707
  Serious: Yes (Disabling, Other)
  Sender: FDA-Public Use
  Company Number: 2007SP001167

PATIENT
  Age: 46 Year
  Sex: Female
  Weight: 65 kg

DRUGS (6)
  1. NASONEX [Suspect]
     Indication: SINUSITIS
     Dosage: 2 DF;QD; NAS
     Route: 045
     Dates: start: 20050831, end: 20070101
  2. DESLORATADINE [Concomitant]
  3. BECONASE [Concomitant]
  4. NASACORT [Concomitant]
  5. RHINOCORT [Concomitant]
  6. ZYRTEC [Concomitant]

REACTIONS (1)
  - CATARACT [None]
